FAERS Safety Report 24349408 (Version 1)
Quarter: 2024Q3

REPORT INFORMATION
  Report Type: Spontaneous
  Country: US (occurrence: US)
  Receive Date: 20240923
  Receipt Date: 20240923
  Transmission Date: 20241017
  Serious: No
  Sender: ELI LILLY AND CO
  Company Number: US-ELI_LILLY_AND_COMPANY-US202409012153

PATIENT
  Age: 37 Year
  Sex: Female

DRUGS (2)
  1. HUMALOG [Suspect]
     Active Substance: INSULIN LISPRO
     Indication: Product used for unknown indication
     Dosage: UNK UNK, PRN (1 UNIT OF INSULIN FOR EVERY 10 GRAMS OF CARBOHYDRATES)
     Route: 058
     Dates: start: 2018
  2. INSULIN LISPRO [Suspect]
     Active Substance: INSULIN LISPRO
     Indication: Product used for unknown indication
     Dosage: UNK, PRN
     Route: 058

REACTIONS (5)
  - Blood glucose increased [Unknown]
  - Maternal exposure during pregnancy [Unknown]
  - Product storage error [Unknown]
  - Blood glucose decreased [Unknown]
  - Illness [Unknown]
